FAERS Safety Report 20766204 (Version 3)
Quarter: 2022Q4

REPORT INFORMATION
  Report Type: Spontaneous
  Country: US (occurrence: US)
  Receive Date: 20220428
  Receipt Date: 20221006
  Transmission Date: 20230113
  Serious: Yes (Other)
  Sender: FDA-Public Use
  Company Number: US-CELGENE-USA-20220208083

PATIENT
  Age: 84 Year
  Sex: Female

DRUGS (5)
  1. POMALYST [Suspect]
     Active Substance: POMALIDOMIDE
     Indication: Plasma cell myeloma
     Dosage: DOSE : ONE; FREQ : ^DAILY FOR 21 DAYS AND THEN STOP FOR 7 DAYS
     Route: 048
     Dates: start: 20220929
  2. REVLIMID [Suspect]
     Active Substance: LENALIDOMIDE
     Indication: Plasma cell myeloma
     Dosage: ^DAILY FOR 21 DAYS AND THEN STOP FOR 7 DAYS^^
     Route: 048
     Dates: start: 201908
  3. REVLIMID [Suspect]
     Active Substance: LENALIDOMIDE
     Dosage: ^DAILY FOR 21 DAYS AND THEN STOP FOR 7 DAYS^^
     Route: 048
     Dates: start: 201909
  4. REVLIMID [Suspect]
     Active Substance: LENALIDOMIDE
     Dosage: ^DAILY FOR 21 DAYS AND THEN STOP FOR 7 DAYS^^
     Route: 048
     Dates: start: 202004
  5. REVLIMID [Suspect]
     Active Substance: LENALIDOMIDE
     Dosage: ^DAILY FOR 21 DAYS AND THEN STOP FOR 7 DAYS^^
     Route: 048
     Dates: start: 20210716

REACTIONS (5)
  - Hallucination, auditory [Unknown]
  - Neutropenia [Unknown]
  - Dysphonia [Unknown]
  - Product dose omission issue [Unknown]
  - Diarrhoea [Unknown]

NARRATIVE: CASE EVENT DATE: 20220225
